FAERS Safety Report 8616947-6 (Version None)
Quarter: 2012Q3

REPORT INFORMATION
  Report Type: 
  Country: None (occurrence: None)
  Receive Date: 20120823
  Receipt Date: 20120813
  Transmission Date: 20120928
  Serious: No
  Sender: FDA-Public Use
  Company Number: US-009507513-1208USA006064

PATIENT

DRUGS (3)
  1. QVAR 40 [Concomitant]
  2. SINGULAIR [Suspect]
     Indication: ASTHMA
     Dosage: UNK
     Route: 048
     Dates: start: 20100101
  3. PROAIR (ALBUTEROL SULFATE) [Concomitant]

REACTIONS (1)
  - MALAISE [None]
